FAERS Safety Report 8311310-X (Version None)
Quarter: 2012Q2

REPORT INFORMATION
  Report Type: 
  Country: None (occurrence: None)
  Receive Date: 20120425
  Receipt Date: 20120417
  Transmission Date: 20120825
  Serious: Yes (Hospitalization)
  Sender: FDA-Public Use
  Company Number: JP-GLAXOSMITHKLINE-B0508226A

PATIENT
  Sex: Female
  Weight: 59 kg

DRUGS (15)
  1. ALMETA [Concomitant]
     Indication: CHEILITIS
     Route: 061
     Dates: start: 20071023
  2. ARICEPT [Concomitant]
     Dosage: 5MG PER DAY
     Route: 048
     Dates: start: 20060906, end: 20060919
  3. PAXIL [Suspect]
     Dosage: 10MG PER DAY
     Route: 048
     Dates: start: 20071106, end: 20071116
  4. ASPIRIN [Concomitant]
     Dosage: 100MG PER DAY
     Route: 048
  5. ESTAZOLAM [Concomitant]
     Indication: INSOMNIA
     Dosage: 1MG PER DAY
     Route: 048
     Dates: start: 20060801, end: 20060822
  6. PAXIL [Suspect]
     Dosage: 20MG PER DAY
     Route: 048
     Dates: start: 20060801, end: 20071105
  7. ARICEPT [Concomitant]
     Indication: DEMENTIA
     Dosage: 3MG PER DAY
     Route: 048
     Dates: start: 20060823, end: 20060905
  8. PAXIL [Suspect]
     Indication: DEPRESSION
     Dosage: 10MG PER DAY
     Route: 048
     Dates: start: 20060704, end: 20060731
  9. ALDACTONE [Concomitant]
     Dosage: 25MG PER DAY
     Route: 048
  10. GASMOTIN [Concomitant]
     Dosage: 15MG PER DAY
     Route: 048
  11. ACUATIM [Concomitant]
     Indication: FOLLICULITIS
     Route: 061
     Dates: start: 20071023
  12. LIPITOR [Concomitant]
     Indication: HYPERLIPIDAEMIA
     Dosage: 10MG PER DAY
     Route: 048
  13. LENDORMIN [Concomitant]
     Indication: INSOMNIA
     Dosage: .25MG PER DAY
     Route: 048
  14. MAGMITT [Concomitant]
     Indication: CONSTIPATION
     Dosage: 1500MG PER DAY
     Route: 048
  15. AMOBAN [Concomitant]
     Indication: INSOMNIA
     Dosage: 7.5MG PER DAY
     Route: 048
     Dates: start: 20060801

REACTIONS (9)
  - PARKINSONISM [None]
  - POSTURAL REFLEX IMPAIRMENT [None]
  - FALL [None]
  - INTERVERTEBRAL DISC DEGENERATION [None]
  - SPINAL X-RAY ABNORMAL [None]
  - NUCLEAR MAGNETIC RESONANCE IMAGING ABNORMAL [None]
  - GAIT DISTURBANCE [None]
  - SPINAL OSTEOARTHRITIS [None]
  - NERVE DEGENERATION [None]
